FAERS Safety Report 7930790-2 (Version None)
Quarter: 2011Q4

REPORT INFORMATION
  Report Type: 
  Country: None (occurrence: None)
  Receive Date: 20111121
  Receipt Date: 20111111
  Transmission Date: 20120403
  Serious: Yes (Life-Threatening, Hospitalization)
  Sender: FDA-Public Use
  Company Number: FI-GLAXOSMITHKLINE-B0744434A

PATIENT
  Age: 74 Year
  Sex: Male

DRUGS (3)
  1. BLOOD PRESSURE MEDICATION [Concomitant]
     Route: 065
  2. CALCIUM CARBONATE [Concomitant]
     Indication: DYSPEPSIA
  3. ZANTAC [Suspect]
     Indication: DYSPEPSIA
     Dosage: 300MG UNKNOWN
     Route: 048
     Dates: start: 20110830

REACTIONS (8)
  - CARDIAC ARREST [None]
  - ELECTROCARDIOGRAM ST SEGMENT ELEVATION [None]
  - ELECTROCARDIOGRAM Q WAVES [None]
  - CHEST PAIN [None]
  - ELECTROCARDIOGRAM ST SEGMENT DEPRESSION [None]
  - VENTRICULAR FIBRILLATION [None]
  - MYOCARDIAL INFARCTION [None]
  - MALAISE [None]
